FAERS Safety Report 4434113-5 (Version None)
Quarter: 2004Q3

REPORT INFORMATION
  Report Type: 
  Country: None (occurrence: None)
  Receive Date: 20040825
  Receipt Date: 20040810
  Transmission Date: 20050211
  Serious: Yes (Life-Threatening)
  Sender: FDA-Public Use
  Company Number: 04P-087-0270234-00

PATIENT
  Age: 13 Year
  Sex: Female

DRUGS (2)
  1. BIAXIN [Suspect]
     Indication: SINUSITIS
     Dosage: 200 MG, 1 IN 1 D, PER ORAL
     Route: 048
     Dates: start: 20040806, end: 20040806
  2. FEXOFENADINE HYDROCHLORIDE [Concomitant]

REACTIONS (4)
  - ANAPHYLACTOID REACTION [None]
  - DRUG ERUPTION [None]
  - RESPIRATORY FAILURE [None]
  - URTICARIA [None]
